FAERS Safety Report 12014698 (Version 2)
Quarter: 2016Q3

REPORT INFORMATION
  Report Type: Spontaneous
  Country: FR (occurrence: FR)
  Receive Date: 20160205
  Receipt Date: 20160811
  Transmission Date: 20161109
  Serious: Yes (Congenital Anomaly)
  Sender: FDA-Public Use
  Company Number: FR-ABBVIE-16K-056-1549971-00

PATIENT
  Weight: 3 kg

DRUGS (1)
  1. HUMIRA [Suspect]
     Active Substance: ADALIMUMAB
     Indication: PRODUCT USED FOR UNKNOWN INDICATION
     Route: 064

REACTIONS (3)
  - Congenital diaphragmatic eventration [Not Recovered/Not Resolved]
  - Foetal exposure during pregnancy [Unknown]
  - Lung disorder [Unknown]

NARRATIVE: CASE EVENT DATE: 20151217
